FAERS Safety Report 7948706-1 (Version None)
Quarter: 2011Q4

REPORT INFORMATION
  Report Type: 
  Country: None (occurrence: None)
  Receive Date: 20111130
  Receipt Date: 20111130
  Transmission Date: 20120403
  Serious: No
  Sender: FDA-Public Use
  Company Number: None

PATIENT
  Age: 37 Year
  Sex: Male
  Weight: 79.378 kg

DRUGS (1)
  1. PROSCAR [Suspect]
     Indication: ALOPECIA
     Dosage: 1 MG
     Route: 048
     Dates: start: 19980405, end: 20110429

REACTIONS (5)
  - ERECTILE DYSFUNCTION [None]
  - AMNESIA [None]
  - HYPOAESTHESIA [None]
  - TEMPERATURE INTOLERANCE [None]
  - COGNITIVE DISORDER [None]
